FAERS Safety Report 13180030 (Version 3)
Quarter: 2017Q1

REPORT INFORMATION
  Report Type: Spontaneous
  Country: US (occurrence: US)
  Receive Date: 20170202
  Receipt Date: 20170221
  Transmission Date: 20170428
  Serious: Yes (Hospitalization)
  Sender: FDA-Public Use
  Company Number: US-VERTEX PHARMACEUTICALS-2017-000591

PATIENT
  Age: 16 Year
  Sex: Female

DRUGS (20)
  1. GLUCAGON. [Concomitant]
     Active Substance: GLUCAGON
     Dosage: INJECT 1 MG INTO THE MUSCLE AS NEEDED
  2. INSULIN LISPRO [Concomitant]
     Active Substance: INSULIN LISPRO
  3. LORATADINE. [Concomitant]
     Active Substance: LORATADINE
     Dosage: TAKE 1 TABLET (10 MG) BY MOUTH 2 (TWO) TIMES A DAY.
  4. MONTELUKAST [Concomitant]
     Active Substance: MONTELUKAST SODIUM
  5. MULTIVITAMIN [Concomitant]
     Active Substance: VITAMINS
  6. ORKAMBI [Suspect]
     Active Substance: IVACAFTOR\LUMACAFTOR
     Indication: CYSTIC FIBROSIS
     Dosage: 200/125 MG, BID
     Route: 048
     Dates: start: 20150904
  7. DORNASE ALFA [Concomitant]
     Active Substance: DORNASE ALFA
     Dosage: TAKE 2.5 MG BY NEBULIZATION DAILY
  8. ALBUTEROL. [Concomitant]
     Active Substance: ALBUTEROL
     Dosage: INHALE 2-4 PUFFS EVERY 4 (FOUR) HOURS AS NEEDED FOR WHEEZING
  9. HUMALOG [Concomitant]
     Active Substance: INSULIN LISPRO
  10. INSULIN GLARGINE [Concomitant]
     Active Substance: INSULIN GLARGINE
  11. CREON [Concomitant]
     Active Substance: PANCRELIPASE AMYLASE\PANCRELIPASE LIPASE\PANCRELIPASE PROTEASE
  12. SULFAMETHOXAZOLE\TRIMETHOPRIM [Concomitant]
     Active Substance: SULFAMETHOXAZOLE\TRIMETHOPRIM
     Dosage: 2 TABLETS (320 MG OF TRIMETHOPRIM) BY MOUTH 2 (TWO) TIMES A DAY
  13. BUDESONIDE. [Concomitant]
     Active Substance: BUDESONIDE
     Dosage: USE ONE RESPULE (2M1) TWICE A DAY
  14. POLYETHYLENE GLYCOL [Concomitant]
     Active Substance: POLYETHYLENE GLYCOLS
  15. AZITHROMYCIN ANHYDROUS. [Concomitant]
     Active Substance: AZITHROMYCIN ANHYDROUS
     Dosage: TAKE 1 TABLET (500 MG) BY MOUTH 3 (THREE) TIMES A WEEK.
  16. CHOLECALCIFEROL [Concomitant]
     Active Substance: CHOLECALCIFEROL
     Dosage: TAKE 1 CAPSULE (50,000 UNITS) ONCE A WEEK.
  17. FLUTICASONE. [Concomitant]
     Active Substance: FLUTICASONE
     Dosage: 2 SPRAYS BY EACH NASAL ROUTE 2 (TWO) TIMES A DAY.
  18. LANSOPRAZOLE. [Concomitant]
     Active Substance: LANSOPRAZOLE
     Dosage: TAKE 1 TABLET (15 MG) BY MOUTH DAILY.
  19. ZYRTEC [Concomitant]
     Active Substance: CETIRIZINE HYDROCHLORIDE
  20. AZTREONAM LYSIN [Concomitant]
     Dosage: TAKE 1 ML (75 MG) BY NEBULIZATION 3 (THREE) TIMES A DAY

REACTIONS (1)
  - Infective pulmonary exacerbation of cystic fibrosis [Recovered/Resolved]

NARRATIVE: CASE EVENT DATE: 201610
